FAERS Safety Report 10056105 (Version 1)
Quarter: 2014Q2

REPORT INFORMATION
  Report Type: Spontaneous
  Country: US (occurrence: US)
  Receive Date: 20140403
  Receipt Date: 20140403
  Transmission Date: 20141212
  Serious: No
  Sender: FDA-Public Use
  Company Number: US-PFIZER INC-2014092713

PATIENT
  Sex: Male

DRUGS (2)
  1. ELIQUIS [Suspect]
     Dosage: UNK
  2. GABAPENTIN [Suspect]
     Indication: RESTLESS LEGS SYNDROME
     Dosage: UNK

REACTIONS (1)
  - Alopecia [Unknown]
